FAERS Safety Report 4886619-2 (Version None)
Quarter: 2006Q1

REPORT INFORMATION
  Report Type: 
  Country: None (occurrence: None)
  Receive Date: 20060119
  Receipt Date: 20051223
  Transmission Date: 20060701
  Serious: Yes (Hospitalization)
  Sender: FDA-Public Use
  Company Number: VISP-NO-0601S-0001

PATIENT
  Age: 91 Year
  Sex: Female
  Weight: 62 kg

DRUGS (14)
  1. VISIPAQUE [Suspect]
     Dosage: 100  ML, SINGLE DOSE, I.V.
     Route: 042
     Dates: start: 20050814, end: 20050814
  2. BUPRENORPHINE HYDROCHLORIDE (TEMGESIC) [Concomitant]
  3. ACETAMINOPHEN [Concomitant]
  4. PROPYLTHIOURACIL [Concomitant]
  5. PERINDOPRIL ERBUMINE (COVERSUM) [Concomitant]
  6. ACETYLSALICYLIC ACID SRT [Concomitant]
  7. PLAVIX [Concomitant]
  8. TORASEMIDE SODIUM (TOEREM) [Concomitant]
  9. ESOMEPRAZOLE MAGNESIUM (NEXIUM) [Concomitant]
  10. METOPROLOL SUCCINATE (BELO-ZOK) [Concomitant]
  11. ZOLOFT [Concomitant]
  12. ALENDRONIC ACID (FOSAMAX) [Concomitant]
  13. PREDNISONE [Concomitant]
  14. LORAZEPAM (TEMESTA) [Concomitant]

REACTIONS (1)
  - HYPERTHYROIDISM [None]
